FAERS Safety Report 4297259-0 (Version None)
Quarter: 2004Q1

REPORT INFORMATION
  Report Type: 
  Country: None (occurrence: None)
  Receive Date: 20040213
  Receipt Date: 20040129
  Transmission Date: 20041129
  Serious: Yes (Death)
  Sender: FDA-Public Use
  Company Number: S03-USA-05193-01

PATIENT
  Age: 37 Year
  Sex: Male

DRUGS (5)
  1. CELEXA [Suspect]
     Indication: SCHIZOPHRENIA
     Dosage: 40 MG QAM PO
     Route: 048
     Dates: start: 20020401, end: 20030929
  2. CELEXA [Suspect]
     Indication: SCHIZOPHRENIA
  3. RISPERDAL [Concomitant]
  4. COGENTIN [Concomitant]
  5. KLONOPIN [Concomitant]

REACTIONS (3)
  - ACCIDENT [None]
  - DROWNING [None]
  - DRUG TOXICITY [None]
